FAERS Safety Report 20784738 (Version 1)
Quarter: 2022Q2

REPORT INFORMATION
  Report Type: Spontaneous
  Country: US (occurrence: US)
  Receive Date: 20220504
  Receipt Date: 20220504
  Transmission Date: 20220720
  Serious: No
  Sender: FDA-Public Use
  Company Number: US-PFIZER INC-202101127798

PATIENT
  Age: 67 Year
  Sex: Female

DRUGS (3)
  1. CELONTIN [Suspect]
     Active Substance: METHSUXIMIDE
     Indication: Epilepsy
     Dosage: UNK UNK, 3X/DAY
  2. CELONTIN [Suspect]
     Active Substance: METHSUXIMIDE
     Dosage: 1 DF, 1X/DAY
  3. CELONTIN [Suspect]
     Active Substance: METHSUXIMIDE
     Dosage: 1 DF, AS NEEDED

REACTIONS (3)
  - Product supply issue [Unknown]
  - Intentional product misuse [Unknown]
  - Feeling abnormal [Unknown]
